FAERS Safety Report 8207941-8 (Version None)
Quarter: 2012Q1

REPORT INFORMATION
  Report Type: 
  Country: None (occurrence: None)
  Receive Date: 20120314
  Receipt Date: 20120312
  Transmission Date: 20120608
  Serious: No
  Sender: FDA-Public Use
  Company Number: US-PFIZER INC-2012037176

PATIENT
  Sex: Female

DRUGS (1)
  1. GEODON [Suspect]
     Indication: OBSESSIVE-COMPULSIVE DISORDER
     Dosage: 20 MG, 3X/DAY
     Route: 048
     Dates: start: 20070101

REACTIONS (2)
  - GASTROENTERITIS VIRAL [None]
  - MALAISE [None]
